FAERS Safety Report 20962239 (Version 2)
Quarter: 2022Q2

REPORT INFORMATION
  Report Type: Spontaneous
  Country: US (occurrence: US)
  Receive Date: 20220615
  Receipt Date: 20220617
  Transmission Date: 20220721
  Serious: No
  Sender: FDA-Public Use
  Company Number: US-PFIZER INC-202200836505

PATIENT
  Age: 72 Year
  Sex: Female
  Weight: 66.22 kg

DRUGS (1)
  1. METHOTREXATE SODIUM [Suspect]
     Active Substance: METHOTREXATE SODIUM
     Indication: Rheumatoid arthritis
     Dosage: 15MG ONCE A WEEK; 6 TABLETS ONCE A WEEK

REACTIONS (1)
  - Drug ineffective [Unknown]
